FAERS Safety Report 19165169 (Version 1)
Quarter: 2021Q2

REPORT INFORMATION
  Report Type: Spontaneous
  Country: GB (occurrence: GB)
  Receive Date: 20210421
  Receipt Date: 20210421
  Transmission Date: 20210717
  Serious: Yes (Hospitalization)
  Sender: FDA-Public Use
  Company Number: GB-MYLANLABS-2021M1016305

PATIENT
  Age: 23 Year
  Sex: Male
  Weight: 110 kg

DRUGS (10)
  1. PROMETHAZINE [Concomitant]
     Active Substance: PROMETHAZINE HYDROCHLORIDE
     Dosage: MAX 50 MILLIGRAM, QD (25?50MG PRN)
     Route: 048
  2. CLOZARIL [Suspect]
     Active Substance: CLOZAPINE
     Indication: SCHIZOPHRENIA
     Dosage: UNK
     Route: 048
     Dates: start: 20210316
  3. CLOZARIL [Suspect]
     Active Substance: CLOZAPINE
     Dosage: 37.5 MILLIGRAM, QD
     Route: 048
     Dates: start: 20210322, end: 20210323
  4. CLOZARIL [Suspect]
     Active Substance: CLOZAPINE
     Dosage: 12.5 MILLIGRAM, QD
     Route: 048
     Dates: start: 20210316, end: 20210318
  5. PREGABALIN. [Concomitant]
     Active Substance: PREGABALIN
     Dosage: 225 MILLIGRAM, BID
     Route: 048
  6. CLOZARIL [Suspect]
     Active Substance: CLOZAPINE
     Dosage: 25 MILLIGRAM, QD
     Route: 048
     Dates: start: 20210319, end: 20210321
  7. VALPROATE SEMISODIUM [Concomitant]
     Active Substance: DIVALPROEX SODIUM
     Dosage: 1 GRAM, BID
     Route: 048
  8. ZOPICLONE [Concomitant]
     Active Substance: ZOPICLONE
     Dosage: MAX. 7.5 MILLIGRAM, QD (3.75?7.5MG PRN)
     Route: 048
  9. PARACETAMOL [Concomitant]
     Active Substance: ACETAMINOPHEN
     Dosage: MAX 4 GRAM, QD (1GM PRN)
  10. PALIPERIDONE LAI [Concomitant]
     Dosage: 150 MILLIGRAM, Q3W
     Route: 030
     Dates: end: 20210308

REACTIONS (5)
  - Eosinophilia [Unknown]
  - Psychotic disorder [Unknown]
  - C-reactive protein increased [Recovered/Resolved]
  - Body temperature increased [Recovered/Resolved]
  - Orthostatic hypotension [Recovered/Resolved]

NARRATIVE: CASE EVENT DATE: 20210322
